FAERS Safety Report 23346363 (Version 1)
Quarter: 2023Q4

REPORT INFORMATION
  Report Type: Spontaneous
  Country: None (occurrence: CA)
  Receive Date: 20231228
  Receipt Date: 20231228
  Transmission Date: 20240110
  Serious: Yes (Hospitalization, Other)
  Sender: FDA-Public Use
  Company Number: CA-B.Braun Medical Inc.-2149876

PATIENT
  Age: 71 Year
  Sex: Female
  Weight: 69 kg

DRUGS (36)
  1. ACETAMINOPHEN [Suspect]
     Active Substance: ACETAMINOPHEN
  2. METRONIDAZOLE [Suspect]
     Active Substance: METRONIDAZOLE
  3. POTASSIUM CHLORIDE [Suspect]
     Active Substance: POTASSIUM CHLORIDE
  4. ALPRAZOLAM [Suspect]
     Active Substance: ALPRAZOLAM
  5. AMOXICILLIN [Suspect]
     Active Substance: AMOXICILLIN
  6. HYDROCHLOROTHIAZIDE [Suspect]
     Active Substance: HYDROCHLOROTHIAZIDE
  7. VITAMINS [Suspect]
     Active Substance: VITAMINS
  8. MINERALS\VITAMINS [Suspect]
     Active Substance: MINERALS\VITAMINS
  9. ATORVASTATIN CALCIUM [Suspect]
     Active Substance: ATORVASTATIN CALCIUM
  10. BISACODYL [Suspect]
     Active Substance: BISACODYL
  11. BROMHEXINE HYDROCHLORIDE [Suspect]
     Active Substance: BROMHEXINE HYDROCHLORIDE
  12. CALCIUM CARBONATE [Suspect]
     Active Substance: CALCIUM CARBONATE
  13. CALCIUM CARBONATE\CHOLECALCIFEROL [Suspect]
     Active Substance: CALCIUM CARBONATE\CHOLECALCIFEROL
  14. CETIRIZINE [Suspect]
     Active Substance: CETIRIZINE HYDROCHLORIDE
  15. CLARITHROMYCIN [Suspect]
     Active Substance: CLARITHROMYCIN
  16. CLOFIBRATE [Suspect]
     Active Substance: CLOFIBRATE
  17. DIPHENHYDRAMINE [Suspect]
     Active Substance: DIPHENHYDRAMINE
  18. FLUTICASONE [Suspect]
     Active Substance: FLUTICASONE
  19. GRAMICIDIN\POLYMYXIN B [Suspect]
     Active Substance: GRAMICIDIN\POLYMYXIN B
  20. HYDROCHLOROTHIAZIDE [Suspect]
     Active Substance: HYDROCHLOROTHIAZIDE
  21. HYDROMORPHONE HYDROCHLORIDE [Suspect]
     Active Substance: HYDROMORPHONE HYDROCHLORIDE
  22. ICHTHAMMOL\ZINC OXIDE [Suspect]
     Active Substance: ICHTHAMMOL\ZINC OXIDE
  23. ISONIAZID [Suspect]
     Active Substance: ISONIAZID
  24. LOPERAMIDE [Suspect]
     Active Substance: LOPERAMIDE
  25. HERBALS [Suspect]
     Active Substance: HERBALS
  26. NADOLOL [Suspect]
     Active Substance: NADOLOL
  27. NEOMYCIN SULFATE [Suspect]
     Active Substance: NEOMYCIN SULFATE
  28. NICOTINE [Suspect]
     Active Substance: NICOTINE
  29. PANTOPRAZOLE SODIUM [Suspect]
     Active Substance: PANTOPRAZOLE SODIUM
  30. AZITHROMYCIN ANHYDROUS [Suspect]
     Active Substance: AZITHROMYCIN ANHYDROUS
  31. PREDNISONE [Suspect]
     Active Substance: PREDNISONE
  32. PREGABALIN [Suspect]
     Active Substance: PREGABALIN
  33. PYRIDOXINE [Suspect]
     Active Substance: PYRIDOXINE
  34. SODIUM BICARBONATE [Suspect]
     Active Substance: SODIUM BICARBONATE
  35. SULFAMETHOXAZOLE\TRIMETHOPRIM [Suspect]
     Active Substance: SULFAMETHOXAZOLE\TRIMETHOPRIM
  36. VALSARTAN [Suspect]
     Active Substance: VALSARTAN

REACTIONS (28)
  - Abdominal pain [None]
  - Anaemia [None]
  - Chronic sinusitis [None]
  - Colitis [None]
  - Colitis ulcerative [None]
  - Constipation [None]
  - Dyspepsia [None]
  - Erythema [None]
  - Female genital tract fistula [None]
  - Frequent bowel movements [None]
  - Haematochezia [None]
  - Headache [None]
  - Infusion related reaction [None]
  - Malaise [None]
  - Nausea [None]
  - Off label use [None]
  - Oral candidiasis [None]
  - Pain [None]
  - Paraesthesia oral [None]
  - Procedural pain [None]
  - Proctitis [None]
  - Pyrexia [None]
  - Radiculopathy [None]
  - Rectal haemorrhage [None]
  - Therapeutic product effect incomplete [None]
  - Vaginal discharge [None]
  - Vaginal flatulence [None]
  - Weight decreased [None]
